FAERS Safety Report 4506199-0 (Version None)
Quarter: 2004Q4

REPORT INFORMATION
  Report Type: 
  Country: None (occurrence: None)
  Receive Date: 20041119
  Receipt Date: 20030605
  Transmission Date: 20050328
  Serious: Yes (Hospitalization, Disabling, Other)
  Sender: FDA-Public Use
  Company Number: US-MERCK-0306USA00635

PATIENT
  Age: 51 Year
  Sex: Female
  Weight: 66 kg

DRUGS (1)
  1. VIOXX [Suspect]
     Indication: OSTEOARTHRITIS
     Route: 048

REACTIONS (13)
  - ADVERSE EVENT [None]
  - ANXIETY [None]
  - BRONCHITIS [None]
  - DELUSIONAL DISORDER, PERSECUTORY TYPE [None]
  - DEPRESSION [None]
  - DYSPNOEA [None]
  - GASTROOESOPHAGEAL REFLUX DISEASE [None]
  - HIATUS HERNIA [None]
  - LOBAR PNEUMONIA [None]
  - OSTEOPOROSIS [None]
  - PANIC ATTACK [None]
  - SCHIZOPHRENIA, PARANOID TYPE [None]
  - TOOTH DISORDER [None]
